FAERS Safety Report 5391069-9 (Version None)
Quarter: 2007Q3

REPORT INFORMATION
  Report Type: 
  Country: None (occurrence: None)
  Receive Date: 20070719
  Receipt Date: 20070709
  Transmission Date: 20080115
  Serious: Yes (Hospitalization, Other)
  Sender: FDA-Public Use
  Company Number: US-ELI_LILLY_AND_COMPANY-US200707003328

PATIENT
  Sex: Male

DRUGS (3)
  1. GEMCITABINE HCL [Suspect]
     Indication: HODGKIN'S DISEASE
     Dosage: 1000 MBQ, OTHER
  2. VINORELBINE [Concomitant]
     Indication: HODGKIN'S DISEASE
     Dosage: 20 MG/M2, OTHER
  3. DOXIL [Concomitant]
     Indication: HODGKIN'S DISEASE
     Dosage: 20 MG/M2, OTHER

REACTIONS (2)
  - METABOLIC ACIDOSIS [None]
  - PYREXIA [None]
